FAERS Safety Report 18194168 (Version 1)
Quarter: 2020Q3

REPORT INFORMATION
  Report Type: Spontaneous
  Country: US (occurrence: US)
  Receive Date: 20200825
  Receipt Date: 20200825
  Transmission Date: 20201103
  Serious: Yes (Other)
  Sender: FDA-Public Use
  Company Number: NVSC2020US228037

PATIENT
  Sex: Female
  Weight: 46.26 kg

DRUGS (11)
  1. SCOPOLAMINE [Suspect]
     Active Substance: SCOPOLAMINE
     Indication: NAUSEA
     Route: 062
  2. ESTRADIOL. [Suspect]
     Active Substance: ESTRADIOL
     Indication: HOT FLUSH
     Route: 062
  3. SCOPOLAMINE [Suspect]
     Active Substance: SCOPOLAMINE
     Indication: VOMITING
  4. MAGNESIUM [Concomitant]
     Active Substance: MAGNESIUM
     Indication: ABDOMINAL DISCOMFORT
     Dosage: UNK
     Route: 065
  5. TYLENOL [Concomitant]
     Active Substance: ACETAMINOPHEN
     Indication: PRODUCT USED FOR UNKNOWN INDICATION
     Dosage: UNK
     Route: 065
  6. VIVELLE?DOT [Suspect]
     Active Substance: ESTRADIOL
     Indication: BONE DISORDER
  7. MAGNESIUM [Concomitant]
     Active Substance: MAGNESIUM
     Indication: NEURALGIA
  8. BAND AID [Concomitant]
     Active Substance: DEVICE
     Indication: PRODUCT USED FOR UNKNOWN INDICATION
     Dosage: UNK
     Route: 065
  9. VIVELLE?DOT [Suspect]
     Active Substance: ESTRADIOL
     Indication: HOT FLUSH
     Dosage: 0.1 MG
     Route: 062
     Dates: start: 1995
  10. ESTRADIOL. [Suspect]
     Active Substance: ESTRADIOL
     Indication: BONE DISORDER
  11. TRAZODONE [Concomitant]
     Active Substance: TRAZODONE HYDROCHLORIDE
     Indication: PRODUCT USED FOR UNKNOWN INDICATION
     Dosage: 100 MG, QD (NIGHTLY)
     Route: 048

REACTIONS (12)
  - Hypersensitivity [Unknown]
  - Gastrointestinal disorder [Unknown]
  - Pancreatic failure [Unknown]
  - Application site pruritus [Unknown]
  - Drug ineffective [Unknown]
  - Intervertebral disc degeneration [Unknown]
  - Dehydration [Unknown]
  - Thoracic outlet syndrome [Unknown]
  - Abdominal discomfort [Unknown]
  - Application site vesicles [Unknown]
  - Application site pain [Unknown]
  - Application site irritation [Unknown]
